FAERS Safety Report 24625960 (Version 1)
Quarter: 2024Q4

REPORT INFORMATION
  Report Type: Spontaneous
  Country: US (occurrence: US)
  Receive Date: 20241115
  Receipt Date: 20241115
  Transmission Date: 20250114
  Serious: No
  Sender: ANI
  Company Number: US-ANIPHARMA-2024-US-039136

PATIENT
  Sex: Female

DRUGS (9)
  1. CORTICOTROPIN [Suspect]
     Active Substance: CORTICOTROPIN
     Indication: Pulmonary sarcoidosis
     Dosage: 1 ML TWO TIMES PER WEEK
     Route: 058
  2. LAMOTRIGINE [Concomitant]
     Active Substance: LAMOTRIGINE
  3. CYCLOBENZAPRINE HYDROCHLORIDE [Concomitant]
     Active Substance: CYCLOBENZAPRINE HYDROCHLORIDE
  4. HYDROCHLOROTHIAZIDE\LOSARTAN POTASSIUM [Concomitant]
     Active Substance: HYDROCHLOROTHIAZIDE\LOSARTAN POTASSIUM
  5. FAMOTIDINE [Concomitant]
     Active Substance: FAMOTIDINE
  6. PREDNISONE [Concomitant]
     Active Substance: PREDNISONE
  7. OXYCODONE HYDROCHLORIDE [Concomitant]
     Active Substance: OXYCODONE HYDROCHLORIDE
  8. PREGABALIN [Concomitant]
     Active Substance: PREGABALIN
  9. ATORVASTATIN CALCIUM [Concomitant]
     Active Substance: ATORVASTATIN CALCIUM

REACTIONS (3)
  - Product dose omission issue [Unknown]
  - Drug ineffective [Not Recovered/Not Resolved]
  - Urticaria [Not Recovered/Not Resolved]
